FAERS Safety Report 9725597 (Version 1)
Quarter: 2013Q4

REPORT INFORMATION
  Report Type: Spontaneous
  Country: US (occurrence: None)
  Receive Date: 20131127
  Receipt Date: 20131127
  Transmission Date: 20140711
  Serious: Yes (Hospitalization, Disabling)
  Sender: FDA-Public Use
  Company Number: 2030586

PATIENT
  Age: 49 Year
  Sex: Female

DRUGS (2)
  1. EPINEPHRINE [Suspect]
     Indication: MAINTENANCE OF ANAESTHESIA
     Route: 013
  2. LOCAL ANESTHETICS [Suspect]
     Indication: LOCAL ANAESTHESIA
     Route: 013

REACTIONS (9)
  - Haemorrhagic stroke [None]
  - Hypertension [None]
  - Activities of daily living impaired [None]
  - Aphasia [None]
  - Dysphagia [None]
  - Cognitive disorder [None]
  - Incorrect route of drug administration [None]
  - Hemiplegia [None]
  - Unresponsive to stimuli [None]
